FAERS Safety Report 9391283 (Version 1)
Quarter: 2013Q3

REPORT INFORMATION
  Report Type: Spontaneous
  Country: CA (occurrence: CA)
  Receive Date: 20130709
  Receipt Date: 20130709
  Transmission Date: 20140515
  Serious: Yes (Other)
  Sender: FDA-Public Use
  Company Number: CA-BAYER-2013-079777

PATIENT
  Sex: Female

DRUGS (1)
  1. CANESTEN 1 COMFORTAB COMBI-PAK,CANESTEN COMFORTAB COMBI-PAK 1 [Suspect]
     Indication: FUNGAL INFECTION

REACTIONS (2)
  - Vaginal discharge [None]
  - Vaginal haemorrhage [None]
